FAERS Safety Report 17044805 (Version 1)
Quarter: 2019Q4

REPORT INFORMATION
  Report Type: Spontaneous
  Country: US (occurrence: US)
  Receive Date: 20191018
  Receipt Date: 20191018
  Transmission Date: 20200122
  Serious: Yes (Death)
  Sender: FDA-Public Use
  Company Number: None

PATIENT
  Age: 85 Year
  Sex: Female
  Weight: 60.78 kg

DRUGS (9)
  1. LEVOTHYROXINE. [Concomitant]
     Active Substance: LEVOTHYROXINE
  2. ESTROVEN [Concomitant]
     Active Substance: DIETARY SUPPLEMENT
  3. OXYCODONE [Suspect]
     Active Substance: OXYCODONE
  4. VOLTAREN [Suspect]
     Active Substance: DICLOFENAC SODIUM
     Indication: ARTHRITIS
     Dosage: ?          QUANTITY:1 % PERCENT;?
  5. OXYCONTIN [Concomitant]
     Active Substance: OXYCODONE HYDROCHLORIDE
  6. OMEPRAZOLE. [Suspect]
     Active Substance: OMEPRAZOLE
  7. ZOFRAN [Concomitant]
     Active Substance: ONDANSETRON HYDROCHLORIDE
  8. AVASTIN [Suspect]
     Active Substance: BEVACIZUMAB
  9. GABAPENTIN. [Concomitant]
     Active Substance: GABAPENTIN

REACTIONS (5)
  - Ovarian cancer [None]
  - Metastases to lymph nodes [None]
  - Metastases to lung [None]
  - Dyspepsia [None]
  - Intestinal perforation [None]

NARRATIVE: CASE EVENT DATE: 20190127
